FAERS Safety Report 9052598 (Version 1)
Quarter: 2013Q1

REPORT INFORMATION
  Report Type: Spontaneous
  Country: US (occurrence: US)
  Receive Date: 20130207
  Receipt Date: 20130207
  Transmission Date: 20140127
  Serious: No
  Sender: FDA-Public Use
  Company Number: US-PFIZER INC-2013050171

PATIENT
  Age: 60 Year
  Sex: Female

DRUGS (3)
  1. ADVIL [Suspect]
     Indication: HEADACHE
     Dosage: 200 MG, AS NEEDED
     Route: 048
  2. ADVIL [Suspect]
     Dosage: UNK, AS NEEDED
     Dates: start: 2013
  3. TYLENOL [Suspect]
     Indication: HEADACHE
     Dosage: UNK

REACTIONS (3)
  - Poor quality drug administered [Unknown]
  - Drug ineffective [Unknown]
  - Tablet physical issue [Unknown]
